FAERS Safety Report 6619961-5 (Version None)
Quarter: 2010Q1

REPORT INFORMATION
  Report Type: 
  Country: None (occurrence: None)
  Receive Date: 20100304
  Receipt Date: 20100216
  Transmission Date: 20100710
  Serious: Yes (Hospitalization, Other)
  Sender: FDA-Public Use
  Company Number: KV200800915

PATIENT
  Age: 51 Year
  Sex: Male
  Weight: 95.2 kg

DRUGS (22)
  1. ISOSORBIDE MONONITRATE [Suspect]
     Indication: CARDIAC DISORDER
     Dosage: 60 MG, QD, ORAL
     Route: 048
  2. SEROQUEL [Concomitant]
  3. VENLAFAXINE HCL [Concomitant]
  4. VALIUM [Concomitant]
  5. LOPRESSOR [Concomitant]
  6. VITAMIN E /00110501/ (TOCOPHEROL) [Concomitant]
  7. ASPIRIN [Concomitant]
  8. LASIX [Concomitant]
  9. TRICOR /00499301/ (FENOFIBRATE) [Concomitant]
  10. NORVASC /00972401/ (AMLODIPINE) [Concomitant]
  11. ACTOS /01460201/ (PIOGLITAZONE) [Concomitant]
  12. GLUCOPHAGE /00082701/ (METFORMIN) [Concomitant]
  13. TICLID [Concomitant]
  14. WELLBUTRIN [Concomitant]
  15. MEVACOR [Concomitant]
  16. VITAMIN C /00008001/ (ASCORBIC ACID) [Concomitant]
  17. IRON (IRON) [Concomitant]
  18. FOLIC ACID [Concomitant]
  19. ERGOCALCIFEROL [Concomitant]
  20. CALCIUM WITH VITAMIN D /00944201/ (CALCIUM CARBONATE, COLECALCIFEROL) [Concomitant]
  21. BENICAR [Concomitant]
  22. NITROQUICK (GLYCERYL TRINITRATE) [Concomitant]

REACTIONS (20)
  - ASTHENIA [None]
  - CEREBROVASCULAR ACCIDENT [None]
  - CHEST PAIN [None]
  - COMPLEX PARTIAL SEIZURES [None]
  - CONFUSIONAL STATE [None]
  - CORONARY OSTIAL STENOSIS [None]
  - DIZZINESS [None]
  - DRUG INEFFECTIVE [None]
  - FALL [None]
  - HEADACHE [None]
  - HYPERTENSION [None]
  - HYPOAESTHESIA [None]
  - LEFT VENTRICULAR DYSFUNCTION [None]
  - MYALGIA [None]
  - MYOCARDIAL ISCHAEMIA [None]
  - OEDEMA PERIPHERAL [None]
  - PRODUCT QUALITY ISSUE [None]
  - SPEECH DISORDER [None]
  - TRANSIENT ISCHAEMIC ATTACK [None]
  - WEIGHT INCREASED [None]
